FAERS Safety Report 8237825-0 (Version None)
Quarter: 2012Q1

REPORT INFORMATION
  Report Type: 
  Country: None (occurrence: None)
  Receive Date: 20120309
  Receipt Date: 20110211
  Transmission Date: 20120608
  Serious: Yes (Other)
  Sender: FDA-Public Use
  Company Number: PHHY2010US78418

PATIENT
  Age: 45 Year
  Sex: Male

DRUGS (1)
  1. EXTAVIA [Suspect]
     Indication: MULTIPLE SCLEROSIS
     Dosage: 0.25 MG, QOD, SUBCUTANEOUS
     Route: 058
     Dates: start: 20100504

REACTIONS (13)
  - SWOLLEN TONGUE [None]
  - PRURITUS GENERALISED [None]
  - INJECTION SITE IRRITATION [None]
  - PAIN [None]
  - INJECTION SITE MASS [None]
  - ERYTHEMA [None]
  - URTICARIA [None]
  - MUSCULOSKELETAL STIFFNESS [None]
  - FEELING ABNORMAL [None]
  - DIPLOPIA [None]
  - MULTIPLE SCLEROSIS RELAPSE [None]
  - RASH [None]
  - HYPOAESTHESIA [None]
